FAERS Safety Report 6442471-5 (Version None)
Quarter: 2009Q4

REPORT INFORMATION
  Report Type: 
  Country: None (occurrence: None)
  Receive Date: 20091117
  Receipt Date: 20091105
  Transmission Date: 20100525
  Serious: Yes (Hospitalization)
  Sender: FDA-Public Use
  Company Number: DE-RANBAXY-2009RR-29161

PATIENT
  Age: 78 Year
  Sex: Male
  Weight: 75 kg

DRUGS (8)
  1. VERAPAMIL [Suspect]
     Indication: CORONARY ARTERY DISEASE
     Dosage: 240 MG, BID
     Route: 048
     Dates: start: 20090701, end: 20090819
  2. ACETYLSALICYLIC ACID [Concomitant]
     Indication: ISCHAEMIC HEART DISEASE PROPHYLAXIS
     Dosage: 100 MG, QD
     Route: 048
     Dates: start: 20080101
  3. ATMADISC [Concomitant]
     Indication: ASTHMA
     Dosage: 1 DF, BID
     Route: 055
  4. DEPRESSAN [Concomitant]
     Indication: HYPERTENSION
     Dosage: 25 MG, BID
     Route: 048
  5. GLIMEPIRIDE [Concomitant]
     Indication: TYPE 2 DIABETES MELLITUS
     Dosage: 1 MG, QD
     Route: 048
     Dates: start: 20070101
  6. MICARDIS HCT [Concomitant]
     Indication: HYPERTENSION
     Dosage: 1 DF, QD
     Route: 048
  7. PRAVASTATIN [Concomitant]
     Indication: HYPERLIPIDAEMIA
     Dosage: 15 MG, QD
     Route: 048
     Dates: start: 20070101
  8. SOTALOL [Concomitant]
     Indication: ARRHYTHMIA
     Dosage: UNK
     Route: 048
     Dates: start: 20080101, end: 20090708

REACTIONS (1)
  - CARDIAC FAILURE [None]
